FAERS Safety Report 18910880 (Version 1)
Quarter: 2021Q1

REPORT INFORMATION
  Report Type: Spontaneous
  Country: CA (occurrence: CA)
  Receive Date: 20210218
  Receipt Date: 20210218
  Transmission Date: 20210420
  Serious: Yes (Life-Threatening)
  Sender: FDA-Public Use
  Company Number: CA-TEVA-2021-CA-1880628

PATIENT
  Age: 14 Year
  Sex: Female
  Weight: 94 kg

DRUGS (36)
  1. DOXYCYCLINE. [Suspect]
     Active Substance: DOXYCYCLINE
     Indication: ASSISTED FERTILISATION
     Dosage: 200 MILLIGRAM DAILY;
     Route: 048
  2. DIPHENHYDRAMINE. [Concomitant]
     Active Substance: DIPHENHYDRAMINE
  3. HEPARIN CALCIUM [Concomitant]
     Active Substance: HEPARIN CALCIUM
  4. MORPHINE [Concomitant]
     Active Substance: MORPHINE
  5. TRANEXAMIC ACID. [Concomitant]
     Active Substance: TRANEXAMIC ACID
  6. GONAL?F [Suspect]
     Active Substance: FOLLITROPIN
     Indication: ASSISTED FERTILISATION
     Route: 058
  7. MYCAMINE [Concomitant]
     Active Substance: MICAFUNGIN SODIUM
  8. NORETHINDRONE. [Concomitant]
     Active Substance: NORETHINDRONE
  9. OVIDREL [Suspect]
     Active Substance: CHORIOGONADOTROPIN ALFA
     Indication: ASSISTED FERTILISATION
     Route: 058
  10. HYDROMORPHONE [Concomitant]
     Active Substance: HYDROMORPHONE
  11. LEVOFLOXACIN. [Concomitant]
     Active Substance: LEVOFLOXACIN
  12. METHOTREXATE. [Concomitant]
     Active Substance: METHOTREXATE
  13. SODIUM [Concomitant]
     Active Substance: SODIUM
  14. CALCIUM [Concomitant]
     Active Substance: CALCIUM
  15. DIMENHYDRINATE. [Concomitant]
     Active Substance: DIMENHYDRINATE
  16. MITOXANTRONE [Concomitant]
     Active Substance: MITOXANTRONE HYDROCHLORIDE
  17. ONDANSETRON [Concomitant]
     Active Substance: ONDANSETRON
  18. PIPERACILLIN/TAZOBACTAM [Concomitant]
     Active Substance: PIPERACILLIN SODIUM\TAZOBACTAM SODIUM
  19. ZINECARD [Concomitant]
     Active Substance: DEXRAZOXANE HYDROCHLORIDE
     Dosage: POWDER FOR SOLUTION INTRAVENOUS
  20. LUVERIS [Suspect]
     Active Substance: LUTROPIN ALFA
     Indication: ASSISTED FERTILISATION
  21. ACETAMINOPHEN. [Concomitant]
     Active Substance: ACETAMINOPHEN
  22. ALLOPURINOL. [Concomitant]
     Active Substance: ALLOPURINOL
  23. LEUPROLIDE [Concomitant]
     Active Substance: LEUPROLIDE
  24. CETROTIDE [Suspect]
     Active Substance: CETRORELIX ACETATE
     Indication: ASSISTED FERTILISATION
     Route: 058
  25. ENOXAPARIN [Concomitant]
     Active Substance: ENOXAPARIN
  26. FUROSEMIDE. [Concomitant]
     Active Substance: FUROSEMIDE
  27. METOCLOPRAMIDE. [Concomitant]
     Active Substance: METOCLOPRAMIDE
  28. POLYETHYLENE GLYCOL [Concomitant]
     Active Substance: POLYETHYLENE GLYCOLS
  29. RANITIDINE. [Concomitant]
     Active Substance: RANITIDINE
  30. TRIMETHOPRIMSULFAMETHOXAZOLE [Concomitant]
     Active Substance: SULFAMETHOXAZOLE\TRIMETHOPRIM
  31. VINCRISTINE SULFATE. [Concomitant]
     Active Substance: VINCRISTINE SULFATE
  32. SODIUM PHOSPHATE [Suspect]
     Active Substance: SODIUM PHOSPHATE
     Route: 065
  33. DEXAMETHASONE. [Concomitant]
     Active Substance: DEXAMETHASONE
     Route: 065
  34. LACTULOSE SYRUP [Concomitant]
     Active Substance: LACTULOSE
  35. OLANZAPINE. [Concomitant]
     Active Substance: OLANZAPINE
  36. SENNOSIDES. [Concomitant]
     Active Substance: SENNOSIDES

REACTIONS (2)
  - Ovarian hyperstimulation syndrome [Recovered/Resolved]
  - Pelvic pain [Recovered/Resolved]
